FAERS Safety Report 8576432-7 (Version None)
Quarter: 2012Q3

REPORT INFORMATION
  Report Type: 
  Country: None (occurrence: None)
  Receive Date: 20120807
  Receipt Date: 20120731
  Transmission Date: 20120928
  Serious: Yes (Death, Life-Threatening, Hospitalization)
  Sender: FDA-Public Use
  Company Number: AR-ROCHE-1074608

PATIENT
  Sex: Female
  Weight: 60 kg

DRUGS (6)
  1. HYDROXYCHLOROQUINE SULFATE [Concomitant]
     Route: 048
  2. METHOTREXATE [Concomitant]
     Dosage: WEEKLY
     Route: 048
  3. ACTEMRA [Suspect]
     Indication: RHEUMATOID ARTHRITIS
     Dosage: LAST DOSE PRIOR TO SAE: 27/APR/2012
     Route: 042
     Dates: start: 20120427, end: 20120427
  4. FOLIC ACID [Concomitant]
     Indication: TOXICITY TO VARIOUS AGENTS
  5. NAPROXEN [Concomitant]
     Route: 048
  6. PREDNISONE [Concomitant]
     Route: 048

REACTIONS (2)
  - PNEUMONIA [None]
  - ACUTE RESPIRATORY FAILURE [None]
